FAERS Safety Report 8784491 (Version 1)
Quarter: 2012Q4

REPORT INFORMATION
  Report Type: 
  Country: SE (occurrence: SE)
  Receive Date: 20120913
  Receipt Date: 20120913
  Transmission Date: 20130627
  Serious: Yes (Hospitalization)
  Sender: FDA-Public Use
  Company Number: SE-PFIZER INC-2012222696

PATIENT
  Age: 34 Year
  Sex: Male
  Weight: 85.5 kg

DRUGS (3)
  1. GENOTROPIN [Suspect]
     Indication: HYPOPITUITARISM
     Dosage: 0.5 mg, 1x/day (7 injections/week)
     Route: 058
     Dates: start: 20010321
  2. LEVAXIN [Concomitant]
     Indication: BLOOD THYROID STIMULATING HORMONE DECREASED
     Dosage: UNK
     Dates: start: 19981015
  3. BEHEPAN [Concomitant]
     Dosage: UNK
     Dates: start: 20060825

REACTIONS (1)
  - Vitamin B12 deficiency [Unknown]
